FAERS Safety Report 7607298-7 (Version None)
Quarter: 2011Q3

REPORT INFORMATION
  Report Type: 
  Country: None (occurrence: None)
  Receive Date: 20110713
  Receipt Date: 20110705
  Transmission Date: 20111222
  Serious: Yes (Hospitalization)
  Sender: FDA-Public Use
  Company Number: PHHY2010MX66268

PATIENT
  Sex: Female

DRUGS (2)
  1. TEGRETOL [Suspect]
     Indication: DIABETIC NEUROPATHY
     Dosage: 1 TABLET (200 MG) PER DAY
     Route: 048
     Dates: start: 20081001, end: 20100930
  2. INSULIN [Concomitant]

REACTIONS (1)
  - PERIPHERAL VASCULAR DISORDER [None]
